FAERS Safety Report 15147474 (Version 1)
Quarter: 2018Q3

REPORT INFORMATION
  Report Type: Spontaneous
  Country: US (occurrence: US)
  Receive Date: 20180716
  Receipt Date: 20180716
  Transmission Date: 20181010
  Serious: No
  Sender: FDA-Public Use
  Company Number: US-AUROBINDO-AUR-APL-2017-42742

PATIENT
  Age: 58 Year
  Sex: Female
  Weight: 56.68 kg

DRUGS (1)
  1. VALACYCLOVIR [Suspect]
     Active Substance: VALACYCLOVIR HYDROCHLORIDE
     Dosage: 1 G, TWO TIMES A DAY
     Route: 048

REACTIONS (1)
  - Dyshidrotic eczema [Not Recovered/Not Resolved]
